FAERS Safety Report 12714528 (Version 1)
Quarter: 2016Q3

REPORT INFORMATION
  Report Type: Report from Study
  Country: US (occurrence: US)
  Receive Date: 20160905
  Receipt Date: 20160905
  Transmission Date: 20161109
  Serious: Yes (Hospitalization, Other)
  Sender: FDA-Public Use
  Company Number: US-ROCHE-1617739

PATIENT
  Age: 58 Year
  Sex: Male
  Weight: 86.6 kg

DRUGS (6)
  1. BEVACIZUMAB [Suspect]
     Active Substance: BEVACIZUMAB
     Dosage: INDUCTION (CYCLE=21 DAYS); ON DAY 1 OF CYCLES 1-4?1307 MG
     Route: 042
     Dates: start: 20150515
  2. BEVACIZUMAB [Suspect]
     Active Substance: BEVACIZUMAB
     Indication: MALIGNANT MELANOMA
     Dosage: INDUCTION (CYCLE=21 DAYS); ON DAY 1 OF CYCLES 1-4; (CYCLE 1)
     Route: 042
     Dates: start: 20150424
  3. IPILIMUMAB [Suspect]
     Active Substance: IPILIMUMAB
     Dosage: INDUCTION (CYCLE=21 DAYS); ON DAY 1 OF CYCLES 1-4?261 MG
     Route: 042
     Dates: start: 20150515
  4. BEVACIZUMAB [Suspect]
     Active Substance: BEVACIZUMAB
     Dosage: INDUCTION (CYCLE=21 DAYS); ON DAY 1 OF CYCLES 1-4; (CYCLE 3)?DATE OF LAST DOSE ADMINISTERED: 05/JUN/
     Route: 042
     Dates: start: 20150605
  5. IPILIMUMAB [Suspect]
     Active Substance: IPILIMUMAB
     Indication: MALIGNANT MELANOMA
     Dosage: INDUCTION (CYCLE=21 DAYS); ON DAY 1 OF CYCLES 1-4; (CYCLE 1)?DATE OF LAST DOSE ADMINISTERED: 05/JUN/
     Route: 042
     Dates: start: 20150424
  6. IPILIMUMAB [Suspect]
     Active Substance: IPILIMUMAB
     Dosage: INDUCTION (CYCLE=21 DAYS); ON DAY 1 OF CYCLES 1-4; (CYCLE 3)?261 MG
     Route: 042
     Dates: start: 20150605

REACTIONS (3)
  - Headache [Unknown]
  - Hypertension [Unknown]
  - Hypophysitis [Unknown]

NARRATIVE: CASE EVENT DATE: 20150522
